FAERS Safety Report 9417350 (Version 1)
Quarter: 2013Q3

REPORT INFORMATION
  Report Type: Spontaneous
  Country: US (occurrence: US)
  Receive Date: 20130724
  Receipt Date: 20130724
  Transmission Date: 20140515
  Serious: No
  Sender: FDA-Public Use
  Company Number: US-MYLANLABS-2013S1010071

PATIENT
  Sex: Male

DRUGS (3)
  1. BUPROPION HYDROCHLORIDE EXTENDED-RELEASE TABLETS USP (XL) [Suspect]
     Indication: SEASONAL AFFECTIVE DISORDER
     Dates: start: 2013
  2. BUPROPION HYDROCHLORIDE EXTENDED-RELEASE TABLETS USP (XL) [Suspect]
     Indication: ADVERSE DRUG REACTION
     Dates: start: 2013
  3. SSRI [Concomitant]

REACTIONS (4)
  - Drug ineffective [Not Recovered/Not Resolved]
  - Diarrhoea [Not Recovered/Not Resolved]
  - Irritability [Not Recovered/Not Resolved]
  - Depressed mood [Not Recovered/Not Resolved]
